FAERS Safety Report 7481784-5 (Version None)
Quarter: 2011Q2

REPORT INFORMATION
  Report Type: 
  Country: None (occurrence: None)
  Receive Date: 20110516
  Receipt Date: 20110513
  Transmission Date: 20111010
  Serious: Yes (Death)
  Sender: FDA-Public Use
  Company Number: KW-ROXANE LABORATORIES, INC.-2011-DE-02446GD

PATIENT
  Age: 40 Year
  Sex: Male

DRUGS (1)
  1. ORAMORPH SR [Suspect]

REACTIONS (1)
  - OVERDOSE [None]
